FAERS Safety Report 12993485 (Version 1)
Quarter: 2016Q4

REPORT INFORMATION
  Report Type: Spontaneous
  Country: US (occurrence: US)
  Receive Date: 20161202
  Receipt Date: 20161202
  Transmission Date: 20170207
  Serious: No
  Sender: FDA-Public Use
  Company Number: US-009507513-1611USA007365

PATIENT
  Age: 75 Year
  Sex: Female

DRUGS (1)
  1. ZOCOR [Suspect]
     Active Substance: SIMVASTATIN
     Indication: PRODUCT USED FOR UNKNOWN INDICATION
     Route: 048

REACTIONS (3)
  - Liver function test increased [Unknown]
  - Discomfort [Unknown]
  - Drug intolerance [Unknown]

NARRATIVE: CASE EVENT DATE: 20081006
